FAERS Safety Report 5481228-9 (Version None)
Quarter: 2007Q4

REPORT INFORMATION
  Report Type: 
  Country: None (occurrence: None)
  Receive Date: 20071010
  Receipt Date: 20071003
  Transmission Date: 20080405
  Serious: Yes (Hospitalization)
  Sender: FDA-Public Use
  Company Number: GB-WYE-H00482507

PATIENT
  Age: 76 Year
  Sex: Female

DRUGS (5)
  1. PROPRANOLOL HYDROCHLORIDE [Interacting]
     Indication: ESSENTIAL TREMOR
     Dosage: 80 MG
     Route: 065
  2. PROPRANOLOL HYDROCHLORIDE [Interacting]
     Indication: ANXIETY
  3. DONEPEZIL HCL [Interacting]
     Dosage: 10 MG
     Route: 065
  4. ESCITALOPRAM OXALATE [Suspect]
     Dosage: 10 MG
     Route: 065
  5. OMEPRAZOLE [Suspect]
     Dosage: 20 MG
     Route: 065

REACTIONS (2)
  - DRUG INTERACTION [None]
  - TORSADE DE POINTES [None]
